FAERS Safety Report 6751214-7 (Version None)
Quarter: 2010Q2

REPORT INFORMATION
  Report Type: 
  Country: None (occurrence: None)
  Receive Date: 20100526
  Receipt Date: 20100315
  Transmission Date: 20101027
  Serious: No
  Sender: FDA-Public Use
  Company Number: 305937

PATIENT
  Age: 64 Year
  Sex: Female

DRUGS (2)
  1. VICTOZA [Suspect]
     Indication: TYPE 2 DIABETES MELLITUS
     Dosage: 1.2 MG, QD, SUBUTANOUS; 1.8 MG, QD
     Route: 058
     Dates: start: 20100225, end: 20100305
  2. VICTOZA [Suspect]
     Indication: TYPE 2 DIABETES MELLITUS
     Dosage: 1.2 MG, QD, SUBUTANOUS; 1.8 MG, QD
     Route: 058
     Dates: start: 20100306, end: 20100313

REACTIONS (2)
  - HEADACHE [None]
  - NAUSEA [None]
